FAERS Safety Report 10538301 (Version 1)
Quarter: 2014Q4

REPORT INFORMATION
  Report Type: Spontaneous
  Country: US (occurrence: US)
  Receive Date: 20141023
  Receipt Date: 20141023
  Transmission Date: 20150529
  Serious: No
  Sender: FDA-Public Use
  Company Number: US-ELI_LILLY_AND_COMPANY-US201410009186

PATIENT
  Sex: Female

DRUGS (2)
  1. EVISTA [Suspect]
     Active Substance: RALOXIFENE HYDROCHLORIDE
     Indication: HYSTERECTOMY
     Dosage: 60 MG, QD
     Route: 065
     Dates: start: 1998, end: 201405
  2. EVISTA [Suspect]
     Active Substance: RALOXIFENE HYDROCHLORIDE
     Dosage: 60 MG, OTHER
     Route: 065

REACTIONS (3)
  - Anaemia [Unknown]
  - Off label use [Unknown]
  - Inappropriate schedule of drug administration [Unknown]
